FAERS Safety Report 18355599 (Version 1)
Quarter: 2020Q4

REPORT INFORMATION
  Report Type: Spontaneous
  Country: US (occurrence: US)
  Receive Date: 20201007
  Receipt Date: 20201007
  Transmission Date: 20210114
  Serious: Yes (Hospitalization)
  Sender: FDA-Public Use
  Company Number: None

PATIENT
  Age: 69 Year
  Sex: Male

DRUGS (17)
  1. AMLODIPINE [Concomitant]
     Active Substance: AMLODIPINE BESYLATE
  2. LORAZEPAM. [Concomitant]
     Active Substance: LORAZEPAM
  3. TACROLIMUS 1MG CAP [Suspect]
     Active Substance: TACROLIMUS
     Indication: RENAL TRANSPLANT
     Route: 048
     Dates: start: 20150120
  4. ALLOPURINOL. [Concomitant]
     Active Substance: ALLOPURINOL
  5. BASAGLAR [Concomitant]
     Active Substance: INSULIN GLARGINE
  6. RANEXA [Concomitant]
     Active Substance: RANOLAZINE
  7. SODIUM BICAR [Concomitant]
  8. CALCITRIOL. [Concomitant]
     Active Substance: CALCITRIOL
  9. HYDRALAZINE [Concomitant]
     Active Substance: HYDRALAZINE HYDROCHLORIDE
  10. PRALUENT [Concomitant]
     Active Substance: ALIROCUMAB
  11. BRILINTA [Concomitant]
     Active Substance: TICAGRELOR
  12. FLUOXETINE [Concomitant]
     Active Substance: FLUOXETINE HYDROCHLORIDE
  13. INSULIN ASPA INJ [Concomitant]
  14. NOVOLOG [Concomitant]
     Active Substance: INSULIN ASPART
  15. MYCOPHENOLIC 360 MG [Suspect]
     Active Substance: MYCOPHENOLIC ACID
     Indication: RENAL TRANSPLANT
     Route: 048
     Dates: start: 20150115
  16. ISOSORB MONO [Concomitant]
     Active Substance: ISOSORBIDE MONONITRATE
  17. METOPROLOL. [Concomitant]
     Active Substance: METOPROLOL

REACTIONS (2)
  - Therapy change [None]
  - Chest pain [None]

NARRATIVE: CASE EVENT DATE: 20200903
